FAERS Safety Report 14843937 (Version 1)
Quarter: 2018Q2

REPORT INFORMATION
  Report Type: Spontaneous
  Country: TN (occurrence: TN)
  Receive Date: 20180503
  Receipt Date: 20180503
  Transmission Date: 20180711
  Serious: Yes (Hospitalization)
  Sender: FDA-Public Use
  Company Number: TN-NOVOPROD-597849

PATIENT
  Age: 41 Year
  Sex: Female

DRUGS (3)
  1. ACTRAPID [Suspect]
     Active Substance: INSULIN HUMAN
     Indication: TYPE 2 DIABETES MELLITUS
     Dosage: 12/4/10
     Route: 065
     Dates: start: 2010, end: 20180327
  2. ISOPHANE INSULIN [Suspect]
     Active Substance: INSULIN NOS
     Indication: TYPE 2 DIABETES MELLITUS
     Dosage: 34/30
     Route: 065
     Dates: start: 2010, end: 20180327
  3. METFORMIN [Suspect]
     Active Substance: METFORMIN HYDROCHLORIDE
     Indication: TYPE 2 DIABETES MELLITUS
     Dosage: 2 TAB, QD
     Route: 065
     Dates: start: 2010, end: 20180327

REACTIONS (1)
  - Angiopathy [Recovered/Resolved]
